FAERS Safety Report 6736593-9 (Version None)
Quarter: 2010Q2

REPORT INFORMATION
  Report Type: 
  Country: None (occurrence: None)
  Receive Date: 20100521
  Receipt Date: 20100510
  Transmission Date: 20101027
  Serious: Yes (Hospitalization, Other)
  Sender: FDA-Public Use
  Company Number: US-ELI_LILLY_AND_COMPANY-US201003000668

PATIENT
  Age: 63 Year
  Sex: Female

DRUGS (8)
  1. FORTEO [Suspect]
     Indication: OSTEOPOROSIS
     Dosage: 20 UG, DAILY (1/D)
     Route: 065
     Dates: start: 20090101, end: 20091201
  2. THEOPHYLLINE [Concomitant]
  3. ADVAIR DISKUS 100/50 [Concomitant]
  4. SINGULAIR [Concomitant]
  5. PRILOSEC [Concomitant]
  6. NEURONTIN [Concomitant]
  7. ZOLOFT [Concomitant]
  8. REMERON [Concomitant]

REACTIONS (1)
  - MYOCARDIAL INFARCTION [None]
